FAERS Safety Report 22369853 (Version 1)
Quarter: 2023Q2

REPORT INFORMATION
  Report Type: Spontaneous
  Country: US (occurrence: US)
  Receive Date: 20230526
  Receipt Date: 20230526
  Transmission Date: 20230722
  Serious: No
  Sender: FDA-Public Use
  Company Number: US-UCBSA-2023011090

PATIENT
  Sex: Male
  Weight: 90.71 kg

DRUGS (2)
  1. CIMZIA [Suspect]
     Active Substance: CERTOLIZUMAB PEGOL
     Indication: Ankylosing spondylitis
     Dosage: 200 MILLIGRAM, EV 2 WEEKS(QOW)
     Route: 058
     Dates: start: 202201
  2. IBUPROFEN [Concomitant]
     Active Substance: IBUPROFEN
     Indication: Product use in unapproved indication
     Dosage: 600 MILLIGRAM

REACTIONS (1)
  - Drug ineffective [Unknown]
